FAERS Safety Report 9356008 (Version 2)
Quarter: 2013Q3

REPORT INFORMATION
  Report Type: Spontaneous
  Country: GB (occurrence: GB)
  Receive Date: 20130619
  Receipt Date: 20130828
  Transmission Date: 20140515
  Serious: Yes (Other)
  Sender: FDA-Public Use
  Company Number: GB-TEVA-412956ISR

PATIENT
  Age: 39 Year
  Sex: Female

DRUGS (4)
  1. CLOMIPRAMINE [Suspect]
     Indication: DEPRESSION
     Dosage: 25 MILLIGRAM DAILY;
     Route: 048
     Dates: start: 20110221, end: 20120820
  2. CLOMIPRAMINE [Suspect]
     Indication: ANXIETY
     Dosage: 50 MILLIGRAM DAILY;
     Route: 048
  3. PIPOTIAZINE [Concomitant]
     Indication: PSYCHOTIC DISORDER
     Dosage: 50 MILLIGRAM DAILY;
     Route: 030
     Dates: start: 20110606, end: 20120606
  4. HALOPERIDOL [Concomitant]
     Indication: PSYCHOTIC DISORDER
     Dosage: 1.5 MILLIGRAM DAILY;
     Route: 048
     Dates: start: 20051026, end: 20111025

REACTIONS (8)
  - Gingival bleeding [Unknown]
  - Bone loss [Unknown]
  - Tooth loss [Unknown]
  - Gingival swelling [Recovering/Resolving]
  - Tooth erosion [Unknown]
  - Dental caries [Unknown]
  - Weight increased [Recovering/Resolving]
  - Gingival recession [Recovering/Resolving]
